FAERS Safety Report 11942811 (Version 1)
Quarter: 2016Q1

REPORT INFORMATION
  Report Type: Spontaneous
  Country: US (occurrence: US)
  Receive Date: 20160125
  Receipt Date: 20160125
  Transmission Date: 20160526
  Serious: No
  Sender: FDA-Public Use
  Company Number: US-UNITED THERAPEUTICS-UNT-2015-007581

PATIENT
  Sex: Female
  Weight: 97.51 kg

DRUGS (2)
  1. ORENITRAM [Suspect]
     Active Substance: TREPROSTINIL
     Indication: PULMONARY HYPERTENSION
     Dosage: 0.25 MG, Q8H
     Route: 048
     Dates: start: 20150615
  2. ORENITRAM [Suspect]
     Active Substance: TREPROSTINIL
     Dosage: 1 MG, BID
     Route: 048
     Dates: start: 20150615

REACTIONS (3)
  - Urticaria [Unknown]
  - Eye oedema [Unknown]
  - Rash [Unknown]

NARRATIVE: CASE EVENT DATE: 2015
